FAERS Safety Report 5169661-6 (Version None)
Quarter: 2006Q4

REPORT INFORMATION
  Report Type: 
  Country: None (occurrence: None)
  Receive Date: 20061212
  Receipt Date: 20061130
  Transmission Date: 20070319
  Serious: Yes (Hospitalization)
  Sender: FDA-Public Use
  Company Number: 2006CG01970

PATIENT
  Age: 80 Year
  Sex: Male

DRUGS (11)
  1. CASODEX [Suspect]
     Indication: PROSTATE CANCER
     Route: 048
     Dates: start: 20051201, end: 20061121
  2. VASTEN [Suspect]
     Indication: HYPERCHOLESTEROLAEMIA
     Dates: end: 20061121
  3. ALLOPURINOL [Suspect]
     Dates: end: 20061121
  4. GLIMEPIRIDE [Suspect]
     Indication: DIABETES MELLITUS NON-INSULIN-DEPENDENT
     Dates: end: 20061121
  5. METFORMIN HCL [Suspect]
     Indication: DIABETES MELLITUS NON-INSULIN-DEPENDENT
     Dates: end: 20061121
  6. ACARBOSE [Suspect]
     Indication: DIABETES MELLITUS NON-INSULIN-DEPENDENT
     Dates: end: 20061121
  7. AVANDIA [Suspect]
     Indication: DIABETES MELLITUS NON-INSULIN-DEPENDENT
     Dates: end: 20061121
  8. DISCOTRINE [Concomitant]
     Indication: ANGINA PECTORIS
  9. SINTROM [Concomitant]
  10. DIGOXIN [Concomitant]
  11. RAMIPRIL [Concomitant]

REACTIONS (2)
  - CYTOLYTIC HEPATITIS [None]
  - HEPATITIS CHOLESTATIC [None]
